FAERS Safety Report 15617659 (Version 1)
Quarter: 2018Q4

REPORT INFORMATION
  Report Type: Spontaneous
  Country: US (occurrence: US)
  Receive Date: 20181114
  Receipt Date: 20181114
  Transmission Date: 20190205
  Serious: Yes (Other)
  Sender: FDA-Public Use
  Company Number: US-ASTRAZENECA-2018SF46047

PATIENT

DRUGS (2)
  1. BYETTA [Suspect]
     Active Substance: EXENATIDE
     Route: 065
     Dates: start: 201705, end: 201801
  2. BYDUREON [Suspect]
     Active Substance: EXENATIDE
     Route: 065
     Dates: start: 201509, end: 201705

REACTIONS (3)
  - Pancreatic carcinoma metastatic [Unknown]
  - Metastases to liver [Unknown]
  - Metastases to spine [Unknown]

NARRATIVE: CASE EVENT DATE: 20171227
